FAERS Safety Report 25951939 (Version 1)
Quarter: 2025Q4

REPORT INFORMATION
  Report Type: Spontaneous
  Country: IN (occurrence: IN)
  Receive Date: 20251023
  Receipt Date: 20251023
  Transmission Date: 20260117
  Serious: Yes (Other)
  Sender: MYLAN
  Company Number: IN-MYLANLABS-2025M1089923

PATIENT
  Age: 16 Year
  Sex: Female

DRUGS (16)
  1. TRAMADOL [Suspect]
     Active Substance: TRAMADOL
     Indication: Diabetic neuropathy
     Dosage: UNK (RECEIVED 1-2 MG/KG AS NEEDED AND CONTINUED)
  2. TRAMADOL [Suspect]
     Active Substance: TRAMADOL
     Dosage: UNK (RECEIVED 1-2 MG/KG AS NEEDED AND CONTINUED)
     Route: 065
  3. TRAMADOL [Suspect]
     Active Substance: TRAMADOL
     Dosage: UNK (RECEIVED 1-2 MG/KG AS NEEDED AND CONTINUED)
     Route: 065
  4. TRAMADOL [Suspect]
     Active Substance: TRAMADOL
     Dosage: UNK (RECEIVED 1-2 MG/KG AS NEEDED AND CONTINUED)
  5. PREGABALIN [Suspect]
     Active Substance: PREGABALIN
     Indication: Diabetic neuropathy
     Dosage: UNK (RECEIVED 300MG TO 600MG)
  6. PREGABALIN [Suspect]
     Active Substance: PREGABALIN
     Dosage: UNK (RECEIVED 300MG TO 600MG)
     Route: 065
  7. PREGABALIN [Suspect]
     Active Substance: PREGABALIN
     Dosage: UNK (RECEIVED 300MG TO 600MG)
     Route: 065
  8. PREGABALIN [Suspect]
     Active Substance: PREGABALIN
     Dosage: UNK (RECEIVED 300MG TO 600MG)
  9. GABAPENTIN [Suspect]
     Active Substance: GABAPENTIN
     Indication: Diabetic neuropathy
     Dosage: UNK (RECEIVED 300MG TO 800MG)
  10. GABAPENTIN [Suspect]
     Active Substance: GABAPENTIN
     Dosage: UNK (RECEIVED 300MG TO 800MG)
     Route: 065
  11. GABAPENTIN [Suspect]
     Active Substance: GABAPENTIN
     Dosage: UNK (RECEIVED 300MG TO 800MG)
     Route: 065
  12. GABAPENTIN [Suspect]
     Active Substance: GABAPENTIN
     Dosage: UNK (RECEIVED 300MG TO 800MG)
  13. DULOXETINE [Suspect]
     Active Substance: DULOXETINE
     Indication: Diabetic neuropathy
     Dosage: UNK (RECEIVED 30MG TO 60MG OVER 1 WEEK)
  14. DULOXETINE [Suspect]
     Active Substance: DULOXETINE
     Dosage: UNK (RECEIVED 30MG TO 60MG OVER 1 WEEK)
     Route: 065
  15. DULOXETINE [Suspect]
     Active Substance: DULOXETINE
     Dosage: UNK (RECEIVED 30MG TO 60MG OVER 1 WEEK)
     Route: 065
  16. DULOXETINE [Suspect]
     Active Substance: DULOXETINE
     Dosage: UNK (RECEIVED 30MG TO 60MG OVER 1 WEEK)

REACTIONS (2)
  - Treatment failure [Unknown]
  - Off label use [Unknown]
